FAERS Safety Report 10465896 (Version 3)
Quarter: 2015Q2

REPORT INFORMATION
  Report Type: Spontaneous
  Country: US (occurrence: US)
  Receive Date: 20140922
  Receipt Date: 20150511
  Transmission Date: 20150821
  Serious: Yes (Other)
  Sender: FDA-Public Use
  Company Number: US-ROCHE-1464521

PATIENT
  Sex: Female

DRUGS (3)
  1. KLONOPIN [Suspect]
     Active Substance: CLONAZEPAM
     Indication: PANIC ATTACK
     Dosage: 0.25 MG ONCE A DAY
     Route: 065
     Dates: start: 1994
  2. KLONOPIN [Suspect]
     Active Substance: CLONAZEPAM
     Route: 065
  3. CLONAZEPAM. [Suspect]
     Active Substance: CLONAZEPAM
     Indication: PANIC ATTACK
     Route: 065

REACTIONS (4)
  - Breast cancer [Unknown]
  - Drug ineffective [Not Recovered/Not Resolved]
  - Head injury [Unknown]
  - Head discomfort [Not Recovered/Not Resolved]
